FAERS Safety Report 5129391-3 (Version None)
Quarter: 2006Q4

REPORT INFORMATION
  Report Type: 
  Country: None (occurrence: None)
  Receive Date: 20061012
  Receipt Date: 20060929
  Transmission Date: 20070319
  Serious: Yes (Life-Threatening, Hospitalization, Other)
  Sender: FDA-Public Use
  Company Number: 2006119344

PATIENT
  Age: 64 Year
  Sex: Male
  Weight: 98.8 kg

DRUGS (9)
  1. SU-011,248 (SUNITINIB MALATE) [Suspect]
     Indication: RENAL CELL CARCINOMA STAGE UNSPECIFIED
     Dosage: 50 MG (50 MG, 1 IN 1 D), ORAL
     Route: 048
     Dates: start: 20060209
  2. PREVACID [Concomitant]
  3. TERAZOSIN HCL [Concomitant]
  4. EFFEXOR XR [Concomitant]
  5. BISOPROLOL FUMARATE [Concomitant]
  6. VITAMIN C (VITAMIN C) [Concomitant]
  7. FLAXSEED OIL (LINSEED OIL) [Concomitant]
  8. DIFLUCAN [Concomitant]
  9. REACTINE (CETRIZINE) [Concomitant]

REACTIONS (4)
  - APHASIA [None]
  - CEREBROVASCULAR ACCIDENT [None]
  - TRANSIENT ISCHAEMIC ATTACK [None]
  - VISION BLURRED [None]
